FAERS Safety Report 8906512 (Version 3)
Quarter: 2013Q1

REPORT INFORMATION
  Report Type: Spontaneous
  Country: JP (occurrence: None)
  Receive Date: 20121108
  Receipt Date: 20130124
  Transmission Date: 20140127
  Serious: Yes (Life-Threatening, Hospitalization)
  Sender: FDA-Public Use
  Company Number: TPA2012A08868

PATIENT
  Age: 57 Year
  Sex: Male

DRUGS (3)
  1. FEBURIC (FEBUXOSTAT) [Suspect]
     Indication: HYPERURICAEMIA
     Route: 048
     Dates: start: 20121006, end: 20121006
  2. MYSLEE [Concomitant]
  3. URALYT [Concomitant]

REACTIONS (1)
  - Anaphylactic reaction [None]
